FAERS Safety Report 5374512-0 (Version None)
Quarter: 2007Q2

REPORT INFORMATION
  Report Type: 
  Country: None (occurrence: None)
  Receive Date: 20070627
  Receipt Date: 20051206
  Transmission Date: 20071010
  Serious: Yes (Other)
  Sender: FDA-Public Use
  Company Number: 427840

PATIENT
  Age: 47 Year
  Sex: Female
  Weight: 59 kg

DRUGS (10)
  1. XELODA [Suspect]
     Indication: COLORECTAL CANCER
     Dosage: 20000 MG 2 PER DAY ORAL
     Route: 048
     Dates: start: 20051005
  2. COUMADIN [Concomitant]
  3. LOVENOX [Concomitant]
  4. ACEBUTOLOL [Concomitant]
  5. ACTONEL [Concomitant]
  6. CALCIUM (CALCIUM) [Concomitant]
  7. CLARADIN         (ASPIRIN/CALCIUM CARBONATE/CITRIC ACID) [Concomitant]
  8. DOXYCYCLINE [Concomitant]
  9. LEVOTHYROXINE SODIUM [Concomitant]
  10. VIT B6                  (PYRIDOXINE HYDROCHLORIDE) [Concomitant]

REACTIONS (1)
  - THROMBOSIS [None]
